FAERS Safety Report 11038293 (Version 1)
Quarter: 2015Q2

REPORT INFORMATION
  Report Type: Spontaneous
  Country: US (occurrence: None)
  Receive Date: 20150415
  Receipt Date: 20150415
  Transmission Date: 20150821
  Serious: Yes (Other)
  Sender: FDA-Public Use
  Company Number: None

PATIENT
  Age: 66 Year
  Sex: Female
  Weight: 60.33 kg

DRUGS (1)
  1. XELODA [Suspect]
     Active Substance: CAPECITABINE
     Indication: BREAST CANCER
     Dosage: ORAL 047
     Route: 048
     Dates: start: 20140226, end: 20150315

REACTIONS (4)
  - Diarrhoea [None]
  - Weight decreased [None]
  - Rash [None]
  - Blister [None]

NARRATIVE: CASE EVENT DATE: 20150314
